FAERS Safety Report 23326887 (Version 1)
Quarter: 2023Q4

REPORT INFORMATION
  Report Type: Report from Study
  Country: TR (occurrence: TR)
  Receive Date: 20231221
  Receipt Date: 20231221
  Transmission Date: 20240111
  Serious: Yes (Other)
  Sender: FDA-Public Use
  Company Number: TR-PFIZER INC-PV202300067854

PATIENT
  Age: 48 Year
  Sex: Male

DRUGS (1)
  1. ELRANATAMAB [Suspect]
     Active Substance: ELRANATAMAB
     Indication: Plasma cell myeloma refractory
     Dosage: 76 MG

REACTIONS (3)
  - Cytokine release syndrome [Unknown]
  - Neutropenia [Recovered/Resolved]
  - Cytomegalovirus viraemia [Unknown]
